FAERS Safety Report 16234785 (Version 1)
Quarter: 2019Q2

REPORT INFORMATION
  Report Type: Spontaneous
  Country: CA (occurrence: CA)
  Receive Date: 20190424
  Receipt Date: 20190424
  Transmission Date: 20190711
  Serious: Yes (Hospitalization)
  Sender: FDA-Public Use
  Company Number: CA-PFIZER INC-2019172803

PATIENT
  Age: 48 Year
  Sex: Male

DRUGS (9)
  1. CLONAZEPAM. [Concomitant]
     Active Substance: CLONAZEPAM
     Dosage: UNK
     Route: 065
  2. FOLIC ACID. [Concomitant]
     Active Substance: FOLIC ACID
     Dosage: UNK
     Route: 065
  3. ZERIT [Concomitant]
     Active Substance: STAVUDINE
     Dosage: UNK
     Route: 065
  4. VIDEX [Concomitant]
     Active Substance: DIDANOSINE
     Dosage: UNK
     Route: 065
  5. VITAMIN K [VITAMIN K NOS] [Concomitant]
     Dosage: UNK
     Route: 065
  6. IBUPROFEN. [Suspect]
     Active Substance: IBUPROFEN
     Dosage: UNK
     Route: 065
  7. VIRAMUNE [Suspect]
     Active Substance: NEVIRAPINE
     Dosage: UNK
     Route: 065
  8. BENADRYL [Concomitant]
     Active Substance: DIPHENHYDRAMINE HYDROCHLORIDE
     Dosage: UNK
     Route: 065
  9. TYLENOL [Concomitant]
     Active Substance: ACETAMINOPHEN
     Dosage: UNK
     Route: 065

REACTIONS (2)
  - Rash [Recovered/Resolved]
  - Hypoaesthesia [Recovered/Resolved]
